APPROVED DRUG PRODUCT: CLINDAMYCIN PHOSPHATE IN DEXTROSE 5%
Active Ingredient: CLINDAMYCIN PHOSPHATE
Strength: EQ 12MG BASE/ML
Dosage Form/Route: INJECTABLE;INJECTION
Application: N050636 | Product #001
Applicant: ABRAXIS PHARMACEUTICAL PRODUCTS
Approved: Dec 22, 1989 | RLD: No | RS: No | Type: DISCN